FAERS Safety Report 7744130-5 (Version None)
Quarter: 2011Q3

REPORT INFORMATION
  Report Type: 
  Country: None (occurrence: None)
  Receive Date: 20110912
  Receipt Date: 20110906
  Transmission Date: 20111222
  Serious: Yes (Hospitalization)
  Sender: FDA-Public Use
  Company Number: AU-SANOFI-AVENTIS-2011SA057522

PATIENT
  Age: 75 Year
  Sex: Female

DRUGS (12)
  1. BICOR [Concomitant]
  2. LASIX [Concomitant]
  3. CRESTOR [Concomitant]
  4. PANTOPRAZOLE [Concomitant]
  5. MAGNESIUM [Concomitant]
  6. LISINOPRIL [Concomitant]
  7. LANTUS [Suspect]
     Route: 065
     Dates: start: 20110301
  8. PLAVIX [Suspect]
     Route: 048
     Dates: start: 19991231
  9. ACETYLSALICYLIC ACID SRT [Concomitant]
  10. IKOREL [Concomitant]
  11. IMDUR [Concomitant]
  12. SEREPAX [Concomitant]

REACTIONS (7)
  - IMPLANTABLE DEFIBRILLATOR REPLACEMENT [None]
  - PAIN IN EXTREMITY [None]
  - GLAUCOMA [None]
  - CATARACT [None]
  - NECK PAIN [None]
  - CONTUSION [None]
  - MYOCARDIAL INFARCTION [None]
